FAERS Safety Report 5581885-2 (Version None)
Quarter: 2008Q1

REPORT INFORMATION
  Report Type: 
  Country: None (occurrence: None)
  Receive Date: 20080104
  Receipt Date: 20071228
  Transmission Date: 20080703
  Serious: Yes (Other)
  Sender: FDA-Public Use
  Company Number: US-PFIZER INC-2007108887

PATIENT
  Sex: Female
  Weight: 73.5 kg

DRUGS (4)
  1. LYRICA [Suspect]
     Indication: NEURALGIA
  2. TOPROL-XL [Concomitant]
  3. MUCINEX [Concomitant]
  4. LORTAB [Concomitant]

REACTIONS (7)
  - DRY MOUTH [None]
  - FAECES DISCOLOURED [None]
  - OEDEMA PERIPHERAL [None]
  - RECTAL HAEMORRHAGE [None]
  - SURGERY [None]
  - VAGINAL HAEMORRHAGE [None]
  - VISION BLURRED [None]
